FAERS Safety Report 7659652-5 (Version None)
Quarter: 2011Q3

REPORT INFORMATION
  Report Type: 
  Country: None (occurrence: None)
  Receive Date: 20110805
  Receipt Date: 20110727
  Transmission Date: 20111222
  Serious: Yes (Hospitalization)
  Sender: FDA-Public Use
  Company Number: BR-ASTRAZENECA-2011SE45593

PATIENT
  Age: 77 Year
  Sex: Female
  Weight: 75 kg

DRUGS (5)
  1. METOPROLOL SUCCINATE [Suspect]
     Indication: HYPERTENSION
     Route: 048
     Dates: start: 20060101
  2. GLIMEPIRIDE [Concomitant]
     Indication: DIABETES MELLITUS
     Route: 048
     Dates: start: 20060101, end: 20110601
  3. ATACAND HCT [Suspect]
     Indication: HYPERTENSION
     Dosage: 16+2.5 MG DAILY
     Route: 048
     Dates: start: 20110601
  4. CRESTOR [Suspect]
     Indication: HYPERTENSION
     Route: 048
     Dates: start: 20060101
  5. ATACAND HCT [Suspect]
     Indication: HYPERTENSION
     Dosage: 16+12.5 MG DAILY
     Route: 048
     Dates: start: 20060101, end: 20110601

REACTIONS (5)
  - RENAL VEIN OCCLUSION [None]
  - RENAL DISORDER [None]
  - VOMITING [None]
  - WEIGHT DECREASED [None]
  - DEPRESSION [None]
